FAERS Safety Report 4401244-5 (Version None)
Quarter: 2004Q3

REPORT INFORMATION
  Report Type: 
  Country: None (occurrence: None)
  Receive Date: 20040907
  Receipt Date: 20040121
  Transmission Date: 20050211
  Serious: No
  Sender: FDA-Public Use
  Company Number: US-BRISTOL-MYERS SQUIBB COMPANY-12483483

PATIENT
  Sex: Female
  Weight: 63 kg

DRUGS (3)
  1. COUMADIN [Suspect]
     Indication: CARDIAC OPERATION
     Route: 048
  2. OXYCONTIN [Concomitant]
  3. CAFERGOT [Concomitant]

REACTIONS (4)
  - BLISTER [None]
  - CONTUSION [None]
  - SKIN DISCOLOURATION [None]
  - SKIN INDURATION [None]
